FAERS Safety Report 5230133-1 (Version None)
Quarter: 2007Q1

REPORT INFORMATION
  Report Type: 
  Country: None (occurrence: None)
  Receive Date: 20070201
  Receipt Date: 20070124
  Transmission Date: 20070707
  Serious: Yes (Hospitalization)
  Sender: FDA-Public Use
  Company Number: CERZ-11492

PATIENT
  Age: 4 Year
  Sex: Female

DRUGS (1)
  1. CEREZYME [Suspect]
     Indication: GAUCHER'S DISEASE
     Dates: start: 20030729

REACTIONS (4)
  - APNOEIC ATTACK [None]
  - CARDIAC FAILURE [None]
  - RENAL FAILURE [None]
  - RESPIRATORY FAILURE [None]
